FAERS Safety Report 10010511 (Version 1)
Quarter: 2014Q1

REPORT INFORMATION
  Report Type: Spontaneous
  Country: DE (occurrence: DE)
  Receive Date: 20140314
  Receipt Date: 20140314
  Transmission Date: 20141002
  Serious: Yes (Other)
  Sender: FDA-Public Use
  Company Number: DE-ROCHE-1362707

PATIENT
  Sex: Female
  Weight: 99 kg

DRUGS (2)
  1. ROFERON-A [Suspect]
     Indication: PRODUCT USED FOR UNKNOWN INDICATION
     Route: 065
     Dates: start: 20070430, end: 20070611
  2. 5-FU [Concomitant]
     Route: 065
     Dates: start: 200704, end: 200706

REACTIONS (1)
  - Drug intolerance [Recovered/Resolved]
